FAERS Safety Report 4497673-4 (Version None)
Quarter: 2004Q4

REPORT INFORMATION
  Report Type: 
  Country: None (occurrence: None)
  Receive Date: 20041108
  Receipt Date: 20041022
  Transmission Date: 20050328
  Serious: Yes (Disabling)
  Sender: FDA-Public Use
  Company Number: GB-JNJFOC-20041006998

PATIENT
  Age: 51 Year
  Sex: Male

DRUGS (2)
  1. ZYDOL [Suspect]
     Indication: ARTHRALGIA
     Dosage: 50-100MG TDS-QDS.
     Route: 049
  2. INSULIN [Concomitant]
     Route: 058

REACTIONS (2)
  - DIARRHOEA [None]
  - PHARMACEUTICAL PRODUCT COMPLAINT [None]
